FAERS Safety Report 19398991 (Version 2)
Quarter: 2021Q3

REPORT INFORMATION
  Report Type: Spontaneous
  Country: FR (occurrence: FR)
  Receive Date: 20210610
  Receipt Date: 20210707
  Transmission Date: 20211014
  Serious: Yes (Disabling)
  Sender: FDA-Public Use
  Company Number: FR-ROCHE-2845901

PATIENT
  Age: 62 Year
  Sex: Male

DRUGS (5)
  1. XOLAIR [Suspect]
     Active Substance: OMALIZUMAB
     Indication: ASTHMA
     Dosage: 2 DOSE OF 150 MG, Q2MO (EVERY 2 MONTHS)
     Route: 058
     Dates: start: 20110120
  2. XOLAIR [Suspect]
     Active Substance: OMALIZUMAB
     Dosage: 375 MG, Q2MO (EVERY 2 MONTHS)
     Route: 058
     Dates: start: 20210529
  3. SYMBICORT [Concomitant]
     Active Substance: BUDESONIDE\FORMOTEROL FUMARATE DIHYDRATE
     Indication: PRODUCT USED FOR UNKNOWN INDICATION
     Dosage: UNK
     Route: 055
  4. XOLAIR [Suspect]
     Active Substance: OMALIZUMAB
     Dosage: 75 MG, Q2MO (EVERY 2 MONTHS)
     Route: 058
     Dates: start: 2011
  5. XOLAIR [Suspect]
     Active Substance: OMALIZUMAB
     Dosage: 375 MG, Q2MO (EVERY 2 MONTHS), FOR 10 YEARS
     Route: 058

REACTIONS (3)
  - Myalgia [Not Recovered/Not Resolved]
  - Cyst [Unknown]
  - Inappropriate schedule of product administration [Unknown]

NARRATIVE: CASE EVENT DATE: 20210529
